FAERS Safety Report 14568608 (Version 1)
Quarter: 2018Q1

REPORT INFORMATION
  Report Type: Spontaneous
  Country: US (occurrence: US)
  Receive Date: 20180216
  Receipt Date: 20180216
  Transmission Date: 20180509
  Serious: No
  Sender: FDA-Public Use
  Company Number: None

PATIENT
  Age: 78 Year
  Sex: Female

DRUGS (1)
  1. NISOLDIPINE ER [Suspect]
     Active Substance: NISOLDIPINE
     Route: 048
     Dates: start: 20180205, end: 20180216

REACTIONS (3)
  - Nausea [None]
  - Vision blurred [None]
  - Palpitations [None]

NARRATIVE: CASE EVENT DATE: 20180216
